FAERS Safety Report 5775714-1 (Version None)
Quarter: 2008Q2

REPORT INFORMATION
  Report Type: 
  Country: None (occurrence: None)
  Receive Date: 20080617
  Receipt Date: 20080605
  Transmission Date: 20081010
  Serious: Yes (Other)
  Sender: FDA-Public Use
  Company Number: US-PFIZER INC-2006143561

PATIENT
  Sex: Female

DRUGS (1)
  1. BEXTRA [Suspect]
     Indication: FIBROMYALGIA
     Dates: start: 20040624, end: 20041130

REACTIONS (1)
  - STEVENS-JOHNSON SYNDROME [None]
